FAERS Safety Report 21830517 (Version 1)
Quarter: 2023Q1

REPORT INFORMATION
  Report Type: Report from Study
  Country: US (occurrence: US)
  Receive Date: 20230106
  Receipt Date: 20230106
  Transmission Date: 20230418
  Serious: No
  Sender: FDA-Public Use
  Company Number: US-ABBVIE-4225860

PATIENT
  Age: 54 Year
  Sex: Female

DRUGS (2)
  1. SKYRIZI [Suspect]
     Active Substance: RISANKIZUMAB-RZAA
     Indication: Psoriasis
     Route: 058
     Dates: start: 20200819
  2. SKYRIZI [Suspect]
     Active Substance: RISANKIZUMAB-RZAA
     Indication: Psoriatic arthropathy

REACTIONS (6)
  - Condition aggravated [Not Recovered/Not Resolved]
  - Eyelid rash [Unknown]
  - Stress [Unknown]
  - Skin exfoliation [Unknown]
  - Rash [Unknown]
  - Onychoclasis [Unknown]

NARRATIVE: CASE EVENT DATE: 20221101
